FAERS Safety Report 9104027 (Version 1)
Quarter: 2013Q1

REPORT INFORMATION
  Report Type: Spontaneous
  Country: US (occurrence: US)
  Receive Date: 20130219
  Receipt Date: 20130219
  Transmission Date: 20140127
  Serious: No
  Sender: FDA-Public Use
  Company Number: US-PFIZER INC-2013059986

PATIENT
  Age: 80 Year
  Sex: Female

DRUGS (1)
  1. VFEND [Suspect]
     Indication: ASPERGILLUS INFECTION
     Dosage: 20 MG, 2X/DAY
     Dates: start: 20130129

REACTIONS (2)
  - Visual impairment [Unknown]
  - Colour blindness acquired [Unknown]
